FAERS Safety Report 9688905 (Version 1)
Quarter: 2013Q4

REPORT INFORMATION
  Report Type: Spontaneous
  Country: US (occurrence: US)
  Receive Date: 20131114
  Receipt Date: 20131114
  Transmission Date: 20140711
  Serious: No
  Sender: FDA-Public Use
  Company Number: US-BAYER-2013-138738

PATIENT
  Age: 56 Year
  Sex: Female
  Weight: 73.47 kg

DRUGS (4)
  1. ALEVE TABLET [Suspect]
     Indication: BACK PAIN
     Dosage: 2 DF, PRN
     Route: 048
  2. ZOCOR [Concomitant]
  3. DIAZEPAM [Concomitant]
  4. LORATADINE [Concomitant]

REACTIONS (2)
  - Feeling abnormal [Recovered/Resolved]
  - Somnolence [Recovered/Resolved]
